FAERS Safety Report 6908906-6 (Version None)
Quarter: 2010Q3

REPORT INFORMATION
  Report Type: 
  Country: None (occurrence: None)
  Receive Date: 20100719
  Receipt Date: 20090803
  Transmission Date: 20110219
  Serious: Yes (Other)
  Sender: FDA-Public Use
  Company Number: US-WYE-H10454909

PATIENT
  Age: 38 Year
  Sex: Female
  Weight: 58.57 kg

DRUGS (2)
  1. ADVIL LIQUI-GELS [Suspect]
     Indication: DYSMENORRHOEA
     Dosage: 2-4 TABLETS AS NEEDED, ORAL
     Route: 048
     Dates: start: 19890101, end: 20090802
  2. ADVIL LIQUI-GELS [Suspect]
     Indication: HEADACHE
     Dosage: 2-4 TABLETS AS NEEDED, ORAL
     Route: 048
     Dates: start: 19890101, end: 20090802

REACTIONS (2)
  - DRUG INEFFECTIVE [None]
  - INCORRECT DOSE ADMINISTERED [None]
